FAERS Safety Report 16665611 (Version 1)
Quarter: 2019Q3

REPORT INFORMATION
  Report Type: Spontaneous
  Country: US (occurrence: US)
  Receive Date: 20190619
  Receipt Date: 20190619
  Transmission Date: 20191004
  Serious: No
  Sender: FDA-Public Use
  Company Number: None

PATIENT

DRUGS (1)
  1. TIKOSYN [Suspect]
     Active Substance: DOFETILIDE

REACTIONS (8)
  - Syncope [None]
  - Ventricular tachycardia [None]
  - Heart rate abnormal [None]
  - Torsade de pointes [None]
  - Headache [None]
  - Drug interaction [None]
  - Dizziness [None]
  - Ventricular arrhythmia [None]
